FAERS Safety Report 5119768-4 (Version None)
Quarter: 2006Q4

REPORT INFORMATION
  Report Type: 
  Country: None (occurrence: None)
  Receive Date: 20061003
  Receipt Date: 20060920
  Transmission Date: 20070319
  Serious: Yes (Hospitalization)
  Sender: FDA-Public Use
  Company Number: PHBS2006JP14526

PATIENT
  Age: 73 Year
  Sex: Male

DRUGS (3)
  1. IMATINIB [Suspect]
     Indication: ACUTE LYMPHOCYTIC LEUKAEMIA
     Dosage: 600 MG/DAY
     Route: 065
  2. PREDNISOLONE [Concomitant]
     Dosage: 60 MG/DAY
  3. HEPARIN [Concomitant]
     Indication: DISSEMINATED INTRAVASCULAR COAGULATION
     Dosage: 10000 IU, QD

REACTIONS (2)
  - BONE MARROW FAILURE [None]
  - BONE MARROW NECROSIS [None]
